FAERS Safety Report 4356178-1 (Version None)
Quarter: 2004Q2

REPORT INFORMATION
  Report Type: 
  Country: None (occurrence: None)
  Receive Date: 20040507
  Receipt Date: 20040407
  Transmission Date: 20050107
  Serious: Yes (Hospitalization)
  Sender: FDA-Public Use
  Company Number: A01200401787

PATIENT
  Age: 75 Year
  Sex: Female

DRUGS (11)
  1. ARIXTRA [Suspect]
     Indication: DEEP VENOUS THROMBOSIS PROPHYLAXIS
     Dosage: 2.5 MG OD
     Route: 058
     Dates: start: 20040402, end: 20040405
  2. ARIXTRA [Suspect]
     Indication: LUNG DISORDER
     Dosage: 2.5 MG OD
     Route: 058
     Dates: start: 20040402, end: 20040405
  3. ARIXTRA [Suspect]
     Indication: PROPHYLAXIS
     Dosage: 2.5 MG OD
     Route: 058
     Dates: start: 20040402, end: 20040405
  4. LEVOTHYROXINE [Concomitant]
  5. ERYTHROMYCIN [Concomitant]
  6. MORPHINE PCA (MORPHINE) [Concomitant]
  7. TORADOL [Concomitant]
  8. SENOKOT [Concomitant]
  9. EPINEPHRINE [Concomitant]
  10. DOPAMINE HCL [Concomitant]
  11. DIMENHYDRINATE [Concomitant]

REACTIONS (5)
  - BLEEDING TIME PROLONGED [None]
  - POST PROCEDURAL HAEMORRHAGE [None]
  - SHOCK [None]
  - URINE OUTPUT DECREASED [None]
  - WOUND HAEMORRHAGE [None]
